FAERS Safety Report 5142374-2 (Version None)
Quarter: 2006Q4

REPORT INFORMATION
  Report Type: 
  Country: None (occurrence: None)
  Receive Date: 20061102
  Receipt Date: 20061025
  Transmission Date: 20070319
  Serious: Yes (Other)
  Sender: FDA-Public Use
  Company Number: JP-JPN-A200604524

PATIENT
  Age: 32 Year
  Sex: Female

DRUGS (3)
  1. PAXIL [Suspect]
     Indication: PANIC DISORDER
     Dosage: 40MG PER DAY
     Route: 048
     Dates: start: 20060523
  2. SEPAZON [Concomitant]
     Route: 048
  3. SEDIEL [Concomitant]
     Route: 048

REACTIONS (1)
  - DYSPAREUNIA [None]
